FAERS Safety Report 15865302 (Version 3)
Quarter: 2021Q1

REPORT INFORMATION
  Report Type: Other
  Country: US (occurrence: US)
  Receive Date: 20190124
  Receipt Date: 20210125
  Transmission Date: 20210419
  Serious: Yes (Hospitalization)
  Sender: FDA-Public Use
  Company Number: US-ACORDA-ACO_156202_2018

PATIENT
  Age: 60 Year
  Sex: Female

DRUGS (10)
  1. AMPYRA [Suspect]
     Active Substance: DALFAMPRIDINE
     Dosage: 10 MILLIGRAM, BID
     Route: 048
     Dates: start: 201906
  2. AVONEX [Suspect]
     Active Substance: INTERFERON BETA-1A
     Dosage: UNK
     Route: 030
     Dates: start: 20001120
  3. AVONEX [Suspect]
     Active Substance: INTERFERON BETA-1A
     Indication: MULTIPLE SCLEROSIS
     Dosage: POWDER FOR SOLUTION FOR INJECTION 30 MICROGRAM, WEEKLY
     Route: 030
     Dates: start: 20001210
  4. AMPYRA [Suspect]
     Active Substance: DALFAMPRIDINE
     Indication: BALANCE DISORDER
     Dosage: 10 MILLIGRAM, TID
     Route: 065
     Dates: start: 20190214, end: 20190411
  5. AMPYRA [Suspect]
     Active Substance: DALFAMPRIDINE
     Dosage: 10 MILLIGRAM, BID
     Route: 065
  6. AVONEX [Suspect]
     Active Substance: INTERFERON BETA-1A
     Dosage: SOLUTION FOR INJECTION IN PRE?FILLED SYRINGE
     Route: 030
     Dates: start: 20001210
  7. AVONEX [Suspect]
     Active Substance: INTERFERON BETA-1A
     Dosage: SOLUTION FOR INJECTION IN PRE?FILLED PEN
     Route: 030
  8. AMPYRA [Suspect]
     Active Substance: DALFAMPRIDINE
     Indication: GAIT DISTURBANCE
     Dosage: 10 MILLIGRAM, BID
     Route: 065
  9. AVONEX [Suspect]
     Active Substance: INTERFERON BETA-1A
     Dosage: SOLUTION FOR INJECTION IN PRE?FILLED SYRINGE
     Route: 030
  10. 4?AMINOPYRIDINE [Suspect]
     Active Substance: DALFAMPRIDINE
     Indication: PRODUCT USED FOR UNKNOWN INDICATION
     Dosage: 10 MILLIGRAM, TID
     Route: 048
     Dates: end: 20190603

REACTIONS (24)
  - Nephrolithiasis [Recovered/Resolved]
  - Condition aggravated [Not Recovered/Not Resolved]
  - Urinary tract infection [Not Recovered/Not Resolved]
  - Cognitive disorder [Not Recovered/Not Resolved]
  - Anxiety [Recovering/Resolving]
  - Off label use [Not Recovered/Not Resolved]
  - Confusional state [Not Recovered/Not Resolved]
  - Stress [Recovered/Resolved]
  - Frustration tolerance decreased [Not Recovered/Not Resolved]
  - Pyrexia [Recovered/Resolved]
  - Malaise [Not Recovered/Not Resolved]
  - Influenza [Recovered/Resolved]
  - Condition aggravated [Not Recovered/Not Resolved]
  - Tremor [Recovered/Resolved]
  - Memory impairment [Recovered/Resolved]
  - Incorrect dose administered [Not Recovered/Not Resolved]
  - Balance disorder [Not Recovered/Not Resolved]
  - Kidney infection [Recovered/Resolved]
  - Diplopia [Recovered/Resolved]
  - Micturition urgency [Not Recovered/Not Resolved]
  - Urinary tract infection [Recovered/Resolved]
  - Gait disturbance [Not Recovered/Not Resolved]
  - Urinary tract infection [Not Recovered/Not Resolved]
  - Headache [Recovered/Resolved]

NARRATIVE: CASE EVENT DATE: 2010
